FAERS Safety Report 6824856-8 (Version None)
Quarter: 2010Q3

REPORT INFORMATION
  Report Type: 
  Country: None (occurrence: None)
  Receive Date: 20100708
  Receipt Date: 20070106
  Transmission Date: 20110219
  Serious: Yes (Other)
  Sender: FDA-Public Use
  Company Number: US-PFIZER INC-2006151415

PATIENT
  Sex: Female
  Weight: 72.6 kg

DRUGS (12)
  1. CHANTIX [Suspect]
     Indication: SMOKING CESSATION THERAPY
     Dates: start: 20061127
  2. SYNTHROID [Concomitant]
  3. ACIPHEX [Concomitant]
  4. TENORMIN [Concomitant]
  5. ALLEGRA [Concomitant]
  6. PIROXICAM [Concomitant]
  7. ZETIA [Concomitant]
  8. TRICOR [Concomitant]
  9. ZOCOR [Concomitant]
  10. OXYCONTIN [Concomitant]
  11. OXYCODONE HCL [Concomitant]
  12. ALBUTEROL [Concomitant]

REACTIONS (6)
  - CONSTIPATION [None]
  - DRY MOUTH [None]
  - HEADACHE [None]
  - HYPERHIDROSIS [None]
  - HYPERTHYROIDISM [None]
  - NAUSEA [None]
